FAERS Safety Report 9536976 (Version 1)
Quarter: 2013Q3

REPORT INFORMATION
  Report Type: Spontaneous
  Country: US (occurrence: None)
  Receive Date: 20130918
  Receipt Date: 20130918
  Transmission Date: 20140515
  Serious: No
  Sender: FDA-Public Use
  Company Number: None

PATIENT
  Age: 60 Year
  Sex: Female

DRUGS (2)
  1. XELJANZ 5 MG PFIZER [Suspect]
     Indication: RHEUMATOID ARTHRITIS
     Dosage: 1 PILL BID ORAL
     Route: 048
     Dates: start: 20130612, end: 20130917
  2. PREDNISONE [Concomitant]

REACTIONS (4)
  - Headache [None]
  - Fatigue [None]
  - Sleep disorder [None]
  - Contusion [None]
